FAERS Safety Report 17095926 (Version 2)
Quarter: 2024Q3

REPORT INFORMATION
  Report Type: Report from Study
  Country: JP (occurrence: JP)
  Receive Date: 20191202
  Receipt Date: 20240722
  Transmission Date: 20241017
  Serious: Yes (Hospitalization)
  Sender: ROCHE
  Company Number: JP-CHUGAI-A2019048936ROCHE

PATIENT
  Age: 70 Year
  Sex: Male
  Weight: 65 kg

DRUGS (7)
  1. GAZYVA [Suspect]
     Active Substance: OBINUTUZUMAB
     Indication: Follicular lymphoma
     Route: 041
     Dates: start: 20190418, end: 20190418
  2. GAZYVA [Suspect]
     Active Substance: OBINUTUZUMAB
     Route: 042
     Dates: start: 20190613, end: 20190613
  3. GAZYVA [Suspect]
     Active Substance: OBINUTUZUMAB
     Route: 042
     Dates: start: 20190711, end: 20190711
  4. GAZYVA [Suspect]
     Active Substance: OBINUTUZUMAB
     Route: 042
     Dates: start: 20190425, end: 20190425
  5. GAZYVA [Suspect]
     Active Substance: OBINUTUZUMAB
     Route: 042
     Dates: start: 20190503, end: 20190503
  6. GAZYVA [Suspect]
     Active Substance: OBINUTUZUMAB
     Route: 042
     Dates: start: 20190516, end: 20190516
  7. BENDAMUSTINE HYDROCHLORIDE [Concomitant]
     Active Substance: BENDAMUSTINE HYDROCHLORIDE
     Indication: Follicular lymphoma
     Route: 042
     Dates: start: 20190419, end: 20190712

REACTIONS (2)
  - Lymphoma transformation [Unknown]
  - Drug ineffective [Unknown]
